FAERS Safety Report 7281781-9 (Version None)
Quarter: 2011Q1

REPORT INFORMATION
  Report Type: 
  Country: None (occurrence: None)
  Receive Date: 20110208
  Receipt Date: 20100316
  Transmission Date: 20110831
  Serious: No
  Sender: FDA-Public Use
  Company Number: US-PFIZER INC-2010035627

PATIENT
  Age: 42 Year
  Sex: Female

DRUGS (1)
  1. SUTENT [Suspect]
     Dosage: 50 MG, 1X/DAY
     Dates: start: 20100101

REACTIONS (3)
  - ALOPECIA [None]
  - ACCIDENTAL EXPOSURE [None]
  - STRESS [None]
